FAERS Safety Report 24234970 (Version 1)
Quarter: 2024Q3

REPORT INFORMATION
  Report Type: Spontaneous
  Country: US (occurrence: US)
  Receive Date: 20240821
  Receipt Date: 20240821
  Transmission Date: 20241017
  Serious: No
  Sender: DERMAVANT SCIENCES
  Company Number: US-Dermavant-001202

PATIENT

DRUGS (1)
  1. VTAMA [Suspect]
     Active Substance: TAPINAROF
     Route: 061
     Dates: start: 20240608

REACTIONS (3)
  - Erythema [Unknown]
  - Pruritus [Unknown]
  - Condition aggravated [Unknown]
